FAERS Safety Report 12393547 (Version 1)
Quarter: 2016Q2

REPORT INFORMATION
  Report Type: Report from Study
  Country: BE (occurrence: BE)
  Receive Date: 20160523
  Receipt Date: 20160523
  Transmission Date: 20160815
  Serious: Yes (Other)
  Sender: FDA-Public Use
  Company Number: BE-BEH-2016060483

PATIENT
  Sex: Female

DRUGS (1)
  1. HIZENTRA [Suspect]
     Active Substance: HUMAN IMMUNOGLOBULIN G
     Indication: PRODUCT USED FOR UNKNOWN INDICATION

REACTIONS (6)
  - Pruritus [Unknown]
  - Oropharyngeal pain [Unknown]
  - Bronchitis [Unknown]
  - Respiratory tract infection [Unknown]
  - Erythema [Unknown]
  - Sinusitis [Unknown]
